FAERS Safety Report 5533883-2 (Version None)
Quarter: 2007Q4

REPORT INFORMATION
  Report Type: 
  Country: None (occurrence: None)
  Receive Date: 20071129
  Receipt Date: 20071115
  Transmission Date: 20080405
  Serious: Yes (Hospitalization)
  Sender: FDA-Public Use
  Company Number: 2007SP023138

PATIENT
  Age: 51 Year
  Sex: Female

DRUGS (8)
  1. TEMOZOLOMIDE [Suspect]
     Indication: GLIOBLASTOMA MULTIFORME
     Dosage: 110 MG;
     Dates: start: 20071007, end: 20071113
  2. URSOBILANE [Concomitant]
  3. OMEPRAZOLE [Concomitant]
  4. ZOLPIDEM TARTRATE [Concomitant]
  5. LEXATIN [Concomitant]
  6. FORTECORTIN [Concomitant]
  7. KEPPRA [Concomitant]
  8. PENTAMIDINE ISETHIONATE [Concomitant]

REACTIONS (6)
  - BLOOD SODIUM DECREASED [None]
  - DRY SKIN [None]
  - FEBRILE NEUTROPENIA [None]
  - LYMPHOPENIA [None]
  - MUCOSAL INFLAMMATION [None]
  - WHITE BLOOD CELL COUNT DECREASED [None]
